FAERS Safety Report 21806008 (Version 1)
Quarter: 2023Q1

REPORT INFORMATION
  Report Type: Spontaneous
  Country: SE (occurrence: SE)
  Receive Date: 20230102
  Receipt Date: 20230102
  Transmission Date: 20230418
  Serious: Yes (Other)
  Sender: FDA-Public Use
  Company Number: None

PATIENT
  Age: 68 Year
  Sex: Male
  Weight: 76 kg

DRUGS (4)
  1. KEPPRA [Suspect]
     Active Substance: LEVETIRACETAM
     Indication: Epilepsy
     Dosage: 250 MG 2KL8+2KL 20
     Dates: start: 20220126, end: 20220321
  2. FOLIC ACID [Concomitant]
     Active Substance: FOLIC ACID
     Indication: Product used for unknown indication
     Dosage: 1 MG 1 TABLET ONCE DAILY
     Dates: start: 20211014
  3. CYANOCOBALAMIN [Concomitant]
     Active Substance: CYANOCOBALAMIN
     Indication: Product used for unknown indication
     Dosage: 1 MG 1 TABLET ONCE DAILY
     Dates: start: 20211014
  4. CANDESARTAN CILEXETIL [Concomitant]
     Active Substance: CANDESARTAN CILEXETIL
     Indication: Product used for unknown indication
     Dosage: 4 MG 1 TABLET ONCE DAILY
     Dates: start: 20180101

REACTIONS (5)
  - Arthralgia [Recovered/Resolved]
  - Myalgia [Recovered/Resolved]
  - Mental fatigue [Recovering/Resolving]
  - Vision blurred [Recovered/Resolved]
  - Suicidal ideation [Recovering/Resolving]

NARRATIVE: CASE EVENT DATE: 20220201
